FAERS Safety Report 11733491 (Version 1)
Quarter: 2015Q4

REPORT INFORMATION
  Report Type: Spontaneous
  Country: BE (occurrence: BE)
  Receive Date: 20151113
  Receipt Date: 20151113
  Transmission Date: 20160304
  Serious: Yes (Disabling, Other)
  Sender: FDA-Public Use
  Company Number: BE-JNJFOC-20151112576

PATIENT
  Age: 46 Year
  Sex: Female

DRUGS (3)
  1. DIOSMIN [Concomitant]
     Active Substance: DIOSMIN
     Route: 065
  2. LODOZ [Concomitant]
     Active Substance: BISOPROLOL FUMARATE\HYDROCHLOROTHIAZIDE
     Indication: BLOOD PRESSURE MEASUREMENT
     Route: 065
  3. XARELTO [Suspect]
     Active Substance: RIVAROXABAN
     Indication: THROMBOPHLEBITIS
     Route: 048
     Dates: start: 20151030

REACTIONS (5)
  - Dry mouth [Recovered/Resolved]
  - Dyspepsia [Unknown]
  - Dizziness [Unknown]
  - Vision blurred [Unknown]
  - Menorrhagia [Unknown]

NARRATIVE: CASE EVENT DATE: 20151106
